FAERS Safety Report 6316085-1 (Version None)
Quarter: 2009Q3

REPORT INFORMATION
  Report Type: 
  Country: None (occurrence: None)
  Receive Date: 20090820
  Receipt Date: 20090812
  Transmission Date: 20100115
  Serious: Yes (Other)
  Sender: FDA-Public Use
  Company Number: PHHY2009GB34150

PATIENT
  Sex: Female

DRUGS (1)
  1. EUCREAS [Suspect]
     Indication: TYPE 2 DIABETES MELLITUS
     Dosage: 1000/50 MG
     Route: 048

REACTIONS (3)
  - EYELID OEDEMA [None]
  - FACE OEDEMA [None]
  - SWELLING FACE [None]
